FAERS Safety Report 24186172 (Version 1)
Quarter: 2024Q3

REPORT INFORMATION
  Report Type: Spontaneous
  Country: US (occurrence: US)
  Receive Date: 20240808
  Receipt Date: 20240808
  Transmission Date: 20241017
  Serious: Yes (Other)
  Sender: AMNEAL
  Company Number: US-AMNEAL PHARMACEUTICALS-2024-AMRX-02801

PATIENT
  Age: 56 Year
  Sex: Female

DRUGS (1)
  1. ARIPIPRAZOLE [Suspect]
     Active Substance: ARIPIPRAZOLE
     Indication: Product used for unknown indication
     Dosage: 1 TABLETS (5 MILLIGRAM), QD
     Route: 048
     Dates: start: 20240729

REACTIONS (1)
  - Burn oral cavity [Not Recovered/Not Resolved]

NARRATIVE: CASE EVENT DATE: 20240729
